FAERS Safety Report 16815440 (Version 6)
Quarter: 2020Q1

REPORT INFORMATION
  Report Type: Spontaneous
  Country: US (occurrence: US)
  Receive Date: 20190917
  Receipt Date: 20200306
  Transmission Date: 20200409
  Serious: No
  Sender: FDA-Public Use
  Company Number: US-009507513-1909USA006023

PATIENT
  Age: 74 Year
  Sex: Female

DRUGS (7)
  1. PROVENTIL [Suspect]
     Active Substance: ALBUTEROL
     Indication: ASTHMA
     Dosage: UNIT 1
  2. PROVENTIL [Suspect]
     Active Substance: ALBUTEROL
     Dosage: UNIT 4
     Dates: start: 20190914
  3. PROVENTIL [Suspect]
     Active Substance: ALBUTEROL
     Dosage: UNIT 2
  4. PROVENTIL [Suspect]
     Active Substance: ALBUTEROL
     Dosage: UNIT 3
  5. ALBUTEROL SULFATE. [Concomitant]
     Active Substance: ALBUTEROL SULFATE
     Dosage: NEBULIZER
  6. PROVENTIL [Suspect]
     Active Substance: ALBUTEROL
     Dosage: 2 PUFFS DAILY AND AS NEEDED
     Dates: start: 20200228
  7. PROVENTIL [Suspect]
     Active Substance: ALBUTEROL
     Dosage: 2 PUFFS DAILY AND AS NEEDED
     Dates: start: 20200214

REACTIONS (17)
  - Poor quality device used [Unknown]
  - Intentional product misuse [Unknown]
  - Wrong technique in product usage process [Unknown]
  - Poor quality device used [Unknown]
  - Product quality issue [Unknown]
  - Product quality issue [Unknown]
  - Incorrect dose administered [Unknown]
  - Product quality issue [Unknown]
  - Asthma [Unknown]
  - Wheezing [Not Recovered/Not Resolved]
  - Product dose omission [Unknown]
  - Product quality issue [Unknown]
  - Feeling abnormal [Unknown]
  - Dyspnoea [Unknown]
  - Poor quality device used [Unknown]
  - Cough [Not Recovered/Not Resolved]
  - Poor quality device used [Unknown]

NARRATIVE: CASE EVENT DATE: 20190914
